FAERS Safety Report 7401720-7 (Version None)
Quarter: 2011Q1

REPORT INFORMATION
  Report Type: 
  Country: None (occurrence: None)
  Receive Date: 20110329
  Receipt Date: 20110315
  Transmission Date: 20110831
  Serious: Yes (Other)
  Sender: FDA-Public Use
  Company Number: 20110004USST

PATIENT
  Sex: Female

DRUGS (2)
  1. CARNITENE (L-CARNITINE) [Suspect]
  2. VALPROATE SODIUM [Suspect]

REACTIONS (2)
  - CONDITION AGGRAVATED [None]
  - EPILEPSY [None]
